FAERS Safety Report 19877052 (Version 1)
Quarter: 2021Q3

REPORT INFORMATION
  Report Type: Spontaneous
  Country: NL (occurrence: NL)
  Receive Date: 20210924
  Receipt Date: 20210924
  Transmission Date: 20211014
  Serious: Yes (Hospitalization)
  Sender: FDA-Public Use
  Company Number: NL-TEVA-2021-NL-1956473

PATIENT
  Age: 62 Year
  Sex: Female
  Weight: 70 kg

DRUGS (5)
  1. PERINDOPRIL TABLET  2,5MG (ARGININE) / BRAND NAME NOT SPECIFIED [Concomitant]
     Dosage: THERAPY START DATE :ASKU,THERAPY END DATE :ASKU
  2. ATENOLOL / BRAND NAME NOT SPECIFIED [Suspect]
     Active Substance: ATENOLOL
     Indication: CARDIAC DISORDER
     Dosage: THERAPY END DATE :ASKU
     Dates: start: 2014
  3. ACETYLSALICYLZUUR / BRAND NAME NOT SPECIFIED [Concomitant]
     Dosage: THERAPY START DATE :ASKU,THERAPY END DATE :ASKU
  4. ATORVASTATINE TABLET 10MG / BRAND NAME NOT SPECIFIED [Suspect]
     Active Substance: ATORVASTATIN
     Indication: CARDIAC DISORDER
     Dosage: THERAPY END DATE :ASKU
     Dates: start: 2014
  5. SPIRONOLACTON / BRAND NAME NOT SPECIFIED [Suspect]
     Active Substance: SPIRONOLACTONE
     Indication: CARDIAC DISORDER
     Dosage: THERAPY END DATE :ASKU
     Dates: start: 2014

REACTIONS (1)
  - Alopecia totalis [Not Recovered/Not Resolved]

NARRATIVE: CASE EVENT DATE: 20160406
